FAERS Safety Report 16106337 (Version 4)
Quarter: 2020Q1

REPORT INFORMATION
  Report Type: Spontaneous
  Country: US (occurrence: US)
  Receive Date: 20190322
  Receipt Date: 20200220
  Transmission Date: 20200409
  Serious: Yes (Disabling, Other)
  Sender: FDA-Public Use
  Company Number: US-CATALYST PHARMACEUTICALS, INC-2019CAT00029

PATIENT
  Age: 55 Year
  Sex: Female
  Weight: 79.37 kg

DRUGS (16)
  1. MELATONIN [Concomitant]
     Active Substance: MELATONIN
  2. FIRDAPSE [Suspect]
     Active Substance: AMIFAMPRIDINE
     Dosage: 10 MG, AS DIRECTED
     Route: 048
     Dates: start: 20190214
  3. PROZAC [Concomitant]
     Active Substance: FLUOXETINE HYDROCHLORIDE
     Dosage: 20 MG, 1X/DAY
  4. PROBIOTIC [Concomitant]
     Active Substance: PROBIOTICS NOS
  5. MOTRIN [Concomitant]
     Active Substance: IBUPROFEN
  6. MULTIVITAMIN [Concomitant]
     Active Substance: VITAMINS
  7. FIRDAPSE [Suspect]
     Active Substance: AMIFAMPRIDINE
     Dosage: 10-20 MG, AS NEEDED UP TO 80 MG DAILY DEPENDING ON SYMPTOMS; TAKING MAXIMUM AMOUNT ALLOWABLE 80 MG
     Route: 048
     Dates: start: 20190207, end: 20190305
  8. NUVIGIL [Concomitant]
     Active Substance: ARMODAFINIL
     Dosage: 75 MG, UP TO 1X/DAY AS NEEDED
  9. FIRDAPSE [Suspect]
     Active Substance: AMIFAMPRIDINE
     Indication: MYASTHENIC SYNDROME
     Dosage: 10-20 MG, AS NEEDED UP TO 80 MG DAILY DEPENDING ON SYMPTOMS, TAKING MAXIMUM ALLOWABLE AMOUNT OF 80 M
     Route: 048
     Dates: start: 20190207, end: 20190305
  10. FIRDAPSE [Suspect]
     Active Substance: AMIFAMPRIDINE
     Dosage: 10 MG, AS DIRECTED
     Route: 048
     Dates: start: 20190207, end: 20190213
  11. ZANTAC [Concomitant]
     Active Substance: RANITIDINE HYDROCHLORIDE
  12. MESTINON [Concomitant]
     Active Substance: PYRIDOSTIGMINE BROMIDE
     Dosage: 60 MG, 2X/DAY
  13. MAGNESIUM CALCITRATE [Concomitant]
  14. KLONOPIN [Concomitant]
     Active Substance: CLONAZEPAM
  15. FIRDAPSE [Suspect]
     Active Substance: AMIFAMPRIDINE
     Dosage: 100 MG PER DAY IN DIVIDED DOSES
     Dates: start: 20190306
  16. PEPCID [Concomitant]
     Active Substance: FAMOTIDINE

REACTIONS (27)
  - Nervousness [Not Recovered/Not Resolved]
  - Frustration tolerance decreased [Not Recovered/Not Resolved]
  - Adjustment disorder with depressed mood [Not Recovered/Not Resolved]
  - Muscle tightness [Recovering/Resolving]
  - Gait disturbance [Recovering/Resolving]
  - Tongue disorder [Unknown]
  - Chest discomfort [Recovering/Resolving]
  - Product substitution issue [Not Recovered/Not Resolved]
  - Eyelid disorder [Recovering/Resolving]
  - Insomnia [Not Recovered/Not Resolved]
  - Mobility decreased [Not Recovered/Not Resolved]
  - Dysphagia [Recovering/Resolving]
  - Fatigue [Not Recovered/Not Resolved]
  - Quality of life decreased [Not Recovered/Not Resolved]
  - Headache [Unknown]
  - Depression [Not Recovered/Not Resolved]
  - Depressed mood [Not Recovered/Not Resolved]
  - Therapeutic response shortened [Not Recovered/Not Resolved]
  - Exercise tolerance decreased [Not Recovered/Not Resolved]
  - Respiratory muscle weakness [Unknown]
  - Emotional distress [Not Recovered/Not Resolved]
  - Therapeutic product effect incomplete [Not Recovered/Not Resolved]
  - Performance status decreased [Not Recovered/Not Resolved]
  - Dyspnoea [Unknown]
  - Muscular weakness [Recovering/Resolving]
  - Asthenia [Not Recovered/Not Resolved]
  - Thirst [Not Recovered/Not Resolved]

NARRATIVE: CASE EVENT DATE: 2019
